FAERS Safety Report 9305347 (Version 1)
Quarter: 2013Q2

REPORT INFORMATION
  Report Type: Spontaneous
  Country: CH (occurrence: CH)
  Receive Date: 20130523
  Receipt Date: 20130523
  Transmission Date: 20140414
  Serious: Yes (Other)
  Sender: FDA-Public Use
  Company Number: CH-PFIZER INC-2013157194

PATIENT
  Age: 77 Year
  Sex: Female

DRUGS (3)
  1. CORDARONE [Suspect]
     Dosage: UNK
  2. XARELTO [Interacting]
     Dosage: 15 MG, DAILY
     Route: 048
     Dates: start: 201303
  3. CHLORTALIDONE [Concomitant]
     Dosage: UNK

REACTIONS (2)
  - Drug interaction [Unknown]
  - Bleeding time prolonged [Recovered/Resolved]
